FAERS Safety Report 6717232-X (Version None)
Quarter: 2010Q2

REPORT INFORMATION
  Report Type: 
  Country: None (occurrence: None)
  Receive Date: 20100510
  Receipt Date: 20100504
  Transmission Date: 20101027
  Serious: Yes (Death, Disabling, Other)
  Sender: FDA-Public Use
  Company Number: PHHY2010FR24544

PATIENT
  Age: 68 Year
  Sex: Male
  Weight: 66 kg

DRUGS (1)
  1. TASIGNA [Suspect]
     Indication: CHRONIC MYELOID LEUKAEMIA
     Dosage: 1 DF, QID
     Dates: start: 20090101, end: 20100201

REACTIONS (17)
  - BLOOD THYROID STIMULATING HORMONE DECREASED [None]
  - CARDIAC FAILURE CONGESTIVE [None]
  - CHEST PAIN [None]
  - DECREASED APPETITE [None]
  - DRUG INTOLERANCE [None]
  - FALL [None]
  - GENERALISED OEDEMA [None]
  - HYPOGONADISM MALE [None]
  - HYPOPITUITARISM [None]
  - MUSCLE FATIGUE [None]
  - MUSCLE SPASMS [None]
  - MYOPATHY [None]
  - NAUSEA [None]
  - PAIN [None]
  - PANCYTOPENIA [None]
  - SECONDARY HYPOTHYROIDISM [None]
  - WEIGHT DECREASED [None]
